FAERS Safety Report 19382770 (Version 1)
Quarter: 2021Q2

REPORT INFORMATION
  Report Type: Report from Study
  Country: FR (occurrence: FR)
  Receive Date: 20210607
  Receipt Date: 20210607
  Transmission Date: 20210717
  Serious: Yes (Life-Threatening, Hospitalization)
  Sender: FDA-Public Use
  Company Number: FR-PFIZER INC-2021589926

PATIENT
  Age: 16 Year
  Sex: Male
  Weight: 64 kg

DRUGS (9)
  1. ALEMTUZUMAB [Suspect]
     Active Substance: ALEMTUZUMAB
     Dosage: 30 MG, 1X/DAY
     Route: 041
     Dates: start: 20190601, end: 20190602
  2. METHYLPREDNISOLONE SODIUM SUCCINATE. [Suspect]
     Active Substance: METHYLPREDNISOLONE SODIUM SUCCINATE
     Indication: PREMEDICATION
     Dosage: 57 MG, 1X/DAY
     Route: 042
     Dates: start: 20190601, end: 20190601
  3. PARACETAMOL [Suspect]
     Active Substance: ACETAMINOPHEN
     Indication: PREMEDICATION
     Dosage: 1 G, 1X/DAY
     Route: 042
     Dates: start: 20190601, end: 20190602
  4. CYCLOSPORINE. [Concomitant]
     Active Substance: CYCLOSPORINE
     Route: 065
     Dates: start: 20190405
  5. SOLUPRED [PREDNISOLONE] [Concomitant]
     Active Substance: PREDNISOLONE
     Dosage: 15 MG, ALTERNATE DAY
     Dates: start: 20190405
  6. ALEMTUZUMAB [Suspect]
     Active Substance: ALEMTUZUMAB
     Dosage: 30 MG, 1X/DAY
     Route: 041
     Dates: start: 20190706, end: 20190706
  7. SULFAMETHOXAZOL;TRIMETOPRIM [Suspect]
     Active Substance: SULFAMETHOXAZOLE\TRIMETHOPRIM
     Indication: PROPHYLAXIS
     Dosage: 800 MG, 1X/DAY
     Route: 048
     Dates: start: 20190403
  8. DEXCHLORPHENIRAMINE MALEATE. [Suspect]
     Active Substance: DEXCHLORPHENIRAMINE MALEATE
     Indication: PREMEDICATION
     Dosage: 5 MG, 1X/DAY
     Route: 042
     Dates: start: 20190601, end: 20190602
  9. ALEMTUZUMAB [Suspect]
     Active Substance: ALEMTUZUMAB
     Indication: FAMILIAL HAEMOPHAGOCYTIC LYMPHOHISTIOCYTOSIS
     Dosage: 30 MG, 1X/DAY
     Route: 041
     Dates: start: 20190518, end: 20190519

REACTIONS (2)
  - Epstein-Barr virus associated lymphoproliferative disorder [Recovered/Resolved with Sequelae]
  - Liver abscess [Unknown]

NARRATIVE: CASE EVENT DATE: 20190627
